FAERS Safety Report 7950643-3 (Version None)
Quarter: 2011Q4

REPORT INFORMATION
  Report Type: 
  Country: None (occurrence: None)
  Receive Date: 20111201
  Receipt Date: 20111121
  Transmission Date: 20120403
  Serious: Yes (Other)
  Sender: FDA-Public Use
  Company Number: BR-RANBAXY-2011R5-46841

PATIENT

DRUGS (2)
  1. NARATRIPTAN [Concomitant]
     Indication: HEADACHE
     Dosage: 2.5 MG, QID
     Route: 048
     Dates: start: 20110807
  2. NORTRIPTYLINE HCL [Suspect]
     Indication: MIGRAINE
     Dosage: 25 MG, QD
     Route: 048
     Dates: start: 20110806, end: 20110809

REACTIONS (7)
  - TACHYCARDIA [None]
  - DIZZINESS [None]
  - ASTHENIA [None]
  - HEADACHE [None]
  - NERVOUSNESS [None]
  - BLOOD PRESSURE DECREASED [None]
  - LOSS OF CONSCIOUSNESS [None]
